FAERS Safety Report 5146850-8 (Version None)
Quarter: 2006Q4

REPORT INFORMATION
  Report Type: 
  Country: None (occurrence: None)
  Receive Date: 20061109
  Receipt Date: 20061017
  Transmission Date: 20070319
  Serious: Yes (Hospitalization)
  Sender: FDA-Public Use
  Company Number: US-GLAXOSMITHKLINE-A0623908A

PATIENT
  Age: 48 Year
  Sex: Female
  Weight: 63 kg

DRUGS (10)
  1. LAMICTAL [Suspect]
     Indication: BIPOLAR DISORDER
     Dosage: 25MG ALTERNATE DAYS
     Route: 048
     Dates: start: 20060929, end: 20061009
  2. DEPAKOTE ER [Concomitant]
     Route: 048
  3. SYNTHROID [Concomitant]
     Dosage: 25MCG PER DAY
     Route: 048
  4. KLONOPIN [Concomitant]
     Dosage: .25MG SEE DOSAGE TEXT
     Route: 048
  5. LITHIUM CARBONATE [Concomitant]
     Dosage: 300MG PER DAY
     Route: 048
  6. ASPIRIN [Concomitant]
     Dosage: 81MG PER DAY
     Route: 048
  7. MULTI-VITAMIN [Concomitant]
     Dosage: 1TAB PER DAY
     Route: 048
  8. FISH OIL [Concomitant]
     Dosage: 1000MG THREE TIMES PER DAY
  9. PROTONIX [Concomitant]
     Indication: PROPHYLAXIS
     Dosage: 40MG PER DAY
     Route: 048
  10. HYDROXYZINE [Concomitant]

REACTIONS (27)
  - ADVERSE DRUG REACTION [None]
  - ALANINE AMINOTRANSFERASE INCREASED [None]
  - ANAEMIA [None]
  - ANOREXIA [None]
  - ASPARTATE AMINOTRANSFERASE INCREASED [None]
  - BACK PAIN [None]
  - CONVULSION [None]
  - DECREASED ACTIVITY [None]
  - DEPRESSED LEVEL OF CONSCIOUSNESS [None]
  - DIARRHOEA [None]
  - DRUG ERUPTION [None]
  - EOSINOPHILIA [None]
  - FATIGUE [None]
  - FEBRILE NEUTROPENIA [None]
  - GAIT DISTURBANCE [None]
  - HEPATIC ENZYME INCREASED [None]
  - INCONTINENCE [None]
  - INFLAMMATION [None]
  - LETHARGY [None]
  - LEUKOPENIA [None]
  - MALAISE [None]
  - PANCYTOPENIA [None]
  - PYREXIA [None]
  - RASH [None]
  - SWELLING [None]
  - THROMBOCYTOPENIA [None]
  - WHITE BLOOD CELL COUNT DECREASED [None]
